FAERS Safety Report 7644660-0 (Version None)
Quarter: 2011Q3

REPORT INFORMATION
  Report Type: 
  Country: None (occurrence: None)
  Receive Date: 20110725
  Receipt Date: 20110712
  Transmission Date: 20111222
  Serious: Yes (Disabling)
  Sender: FDA-Public Use
  Company Number: MSTR-NO-1107S-0191

PATIENT
  Age: 73 Year
  Sex: Male
  Weight: 51.4 kg

DRUGS (12)
  1. MAGNESIUM OXIDE (MAGNESIUM OXIDE) [Concomitant]
  2. ELCITONIN (ELCATONIN) [Concomitant]
  3. OXYCONTIN [Concomitant]
  4. ZOMETA [Concomitant]
  5. HYDROCORTISONE SODIUM SUCCINATE [Concomitant]
  6. METASTRON [Suspect]
     Indication: METASTATIC PAIN
     Dosage: 102.8 MBQ, SINGLE DOSE, INTRAVENOUS
     Route: 042
     Dates: start: 20110616, end: 20110616
  7. SODIUM RABEPRAZOLE (RABEPRAZOLE) [Concomitant]
  8. CARBOPLATIN [Concomitant]
  9. PACLITAXEL [Concomitant]
  10. PROCHLORPERAZINE MALEATE (PROCHLORPERAZINE MALEATE) [Concomitant]
  11. OMEPRAZOLE [Concomitant]
  12. ETODOLAC [Concomitant]

REACTIONS (1)
  - HYPERCALCAEMIA [None]
